FAERS Safety Report 4340664-4 (Version None)
Quarter: 2004Q2

REPORT INFORMATION
  Report Type: 
  Country: None (occurrence: None)
  Receive Date: 20040419
  Receipt Date: 20040408
  Transmission Date: 20050107
  Serious: Yes (Hospitalization)
  Sender: FDA-Public Use
  Company Number: 200411158EU

PATIENT
  Age: 55 Year
  Sex: Female

DRUGS (10)
  1. DOCETAXEL [Suspect]
     Indication: NON-SMALL CELL LUNG CANCER
     Route: 042
     Dates: start: 20040330, end: 20040330
  2. CARBOPLATIN [Suspect]
     Indication: NON-SMALL CELL LUNG CANCER
     Route: 042
     Dates: start: 20040330, end: 20040330
  3. UNKNOWN DRUG [Concomitant]
     Indication: NON-SMALL CELL LUNG CANCER
     Route: 048
     Dates: start: 20040330, end: 20040330
  4. TRIAMTREEN [Concomitant]
     Dosage: DOSE: 100-50
  5. LOSARTAN POTASSIUM W/HYDROCHLOROTHIAZIDE [Concomitant]
     Dosage: DOSE: 100-25
  6. ADALAT [Concomitant]
     Dosage: DOSE: 100-30
  7. EPREX [Concomitant]
  8. FERROFUMARATE [Concomitant]
  9. DURAGESIC [Concomitant]
  10. FAMOTIDINE [Concomitant]

REACTIONS (5)
  - BLOOD CREATININE INCREASED [None]
  - DEHYDRATION [None]
  - DIZZINESS [None]
  - NAUSEA [None]
  - VOMITING [None]
